FAERS Safety Report 13409480 (Version 1)
Quarter: 2017Q2

REPORT INFORMATION
  Report Type: Spontaneous
  Country: US (occurrence: US)
  Receive Date: 20170406
  Receipt Date: 20170406
  Transmission Date: 20170830
  Serious: Yes (Life-Threatening, Hospitalization, Disabling)
  Sender: FDA-Public Use
  Company Number: None

PATIENT
  Age: 50 Year
  Sex: Female
  Weight: 62.1 kg

DRUGS (6)
  1. FLECANIDE [Suspect]
     Active Substance: FLECAINIDE
     Indication: VENTRICULAR ARRHYTHMIA
     Route: 048
     Dates: start: 20160815, end: 20170131
  2. METOPROLOL. [Concomitant]
     Active Substance: METOPROLOL
  3. BABY ASPIRIN [Concomitant]
     Active Substance: ASPIRIN
  4. SYNTHROID [Concomitant]
     Active Substance: LEVOTHYROXINE SODIUM
  5. FLECANIDE [Suspect]
     Active Substance: FLECAINIDE
     Indication: TACHYCARDIA
     Route: 048
     Dates: start: 20160815, end: 20170131
  6. TIKOSYN [Concomitant]
     Active Substance: DOFETILIDE

REACTIONS (6)
  - Atrial fibrillation [None]
  - Muscle disorder [None]
  - Blood pressure decreased [None]
  - Atrial flutter [None]
  - Heart rate increased [None]
  - Hypobarism [None]

NARRATIVE: CASE EVENT DATE: 20170129
